FAERS Safety Report 7621442-7 (Version None)
Quarter: 2011Q3

REPORT INFORMATION
  Report Type: 
  Country: None (occurrence: None)
  Receive Date: 20110719
  Receipt Date: 20110716
  Transmission Date: 20111222
  Serious: Yes (Other)
  Sender: FDA-Public Use
  Company Number: US-PFIZER INC-2011117909

PATIENT
  Sex: Male
  Weight: 99 kg

DRUGS (10)
  1. ZETIA [Concomitant]
     Indication: HIGH DENSITY LIPOPROTEIN DECREASED
     Dosage: 10 MG, DAILY
     Route: 048
  2. LIPITOR [Interacting]
     Indication: BLOOD CHOLESTEROL INCREASED
     Dosage: 40 MG, DAILY
     Route: 048
     Dates: start: 20000101
  3. ZETIA [Concomitant]
     Indication: LOW DENSITY LIPOPROTEIN INCREASED
  4. BENAZEPRIL [Concomitant]
     Indication: CARDIAC DISORDER
     Dosage: 20 MG, DAILY
  5. PREVACID [Suspect]
     Indication: ABDOMINAL PAIN
     Dosage: 20 MG, DAILY
     Route: 048
     Dates: start: 20100401, end: 20100901
  6. NEXIUM [Interacting]
     Indication: ABDOMINAL PAIN
     Dosage: 40 MG, UNK
     Route: 048
     Dates: start: 20100901
  7. FISH OIL [Suspect]
     Dosage: 1200 MG, 2X/DAY
     Route: 048
  8. ATENOLOL [Concomitant]
     Dosage: 12.5 MG, DAILY
  9. NEXIUM [Interacting]
     Dosage: 80 MG, UNK
     Route: 048
     Dates: end: 20110101
  10. ASPIRIN [Concomitant]
     Indication: CARDIAC DISORDER
     Dosage: 81 MG, DAILY

REACTIONS (4)
  - DRUG INEFFECTIVE [None]
  - DRUG INTERACTION [None]
  - ABDOMINAL PAIN [None]
  - BLOOD TRIGLYCERIDES INCREASED [None]
